FAERS Safety Report 7780474-9 (Version None)
Quarter: 2011Q3

REPORT INFORMATION
  Report Type: 
  Country: None (occurrence: None)
  Receive Date: 20110927
  Receipt Date: 20110603
  Transmission Date: 20111222
  Serious: No
  Sender: FDA-Public Use
  Company Number: US-GLAXOSMITHKLINE-A0930181A

PATIENT
  Age: 16 Year
  Sex: Female

DRUGS (2)
  1. LOESTRIN 1.5/30 [Concomitant]
     Indication: CONTRACEPTION
  2. LAMICTAL [Suspect]
     Indication: CONVULSION
     Dosage: 100MG PER DAY
     Route: 048
     Dates: start: 20110511

REACTIONS (5)
  - HEADACHE [None]
  - NAUSEA [None]
  - ABDOMINAL PAIN UPPER [None]
  - MEMORY IMPAIRMENT [None]
  - DEPRESSION [None]
